FAERS Safety Report 4887025-7 (Version None)
Quarter: 2006Q1

REPORT INFORMATION
  Report Type: 
  Country: None (occurrence: None)
  Receive Date: 20060120
  Receipt Date: 20060112
  Transmission Date: 20060701
  Serious: Yes (Hospitalization)
  Sender: FDA-Public Use
  Company Number: US-MERCK-0601USA01608

PATIENT
  Age: 82 Year
  Sex: Male
  Weight: 116 kg

DRUGS (16)
  1. VIOXX [Suspect]
     Indication: ARTHRITIS
     Route: 048
     Dates: start: 19990101, end: 20040809
  2. TYLENOL (CAPLET) [Concomitant]
     Route: 065
  3. ALLOPURINOL MSD [Concomitant]
     Route: 065
  4. PROTONIX [Concomitant]
     Route: 065
  5. DIGOXIN [Concomitant]
     Route: 065
  6. CARDIZEM [Concomitant]
     Route: 065
  7. LIPITOR [Concomitant]
     Route: 065
  8. ATENOLOL [Concomitant]
     Route: 065
  9. COUMADIN [Concomitant]
     Route: 065
  10. KLOR-CON [Concomitant]
     Route: 065
  11. MIRTAZAPINE [Concomitant]
     Route: 065
  12. TEMAZEPAM [Concomitant]
     Route: 065
  13. OMEPRAZOLE [Concomitant]
     Route: 065
  14. WARFARIN [Concomitant]
     Route: 065
  15. FUROSEMIDE [Concomitant]
     Route: 065
  16. [COMPOSITION UNSPECIFIED] [Concomitant]
     Route: 065

REACTIONS (6)
  - ATRIAL FIBRILLATION [None]
  - CARDIAC FAILURE CONGESTIVE [None]
  - CARDIOVASCULAR DISORDER [None]
  - CHEST PAIN [None]
  - CORONARY ARTERY DISEASE [None]
  - MYOCARDIAL INFARCTION [None]
